FAERS Safety Report 4690292-6 (Version None)
Quarter: 2005Q2

REPORT INFORMATION
  Report Type: 
  Country: None (occurrence: None)
  Receive Date: 20050615
  Receipt Date: 20050519
  Transmission Date: 20051028
  Serious: Yes (Hospitalization)
  Sender: FDA-Public Use
  Company Number: JP-GLAXOSMITHKLINE-B0381733A

PATIENT
  Age: 9 Year
  Sex: Female

DRUGS (1)
  1. ACYCLOVIR [Suspect]
     Indication: DRUG USE FOR UNKNOWN INDICATION
     Route: 065

REACTIONS (7)
  - ATHETOSIS [None]
  - CEREBRAL ATROPHY [None]
  - DISORIENTATION [None]
  - DYSKINESIA [None]
  - HYPERKINESIA [None]
  - NERVOUS SYSTEM DISORDER [None]
  - RESTLESSNESS [None]
